FAERS Safety Report 8261432-7 (Version None)
Quarter: 2012Q2

REPORT INFORMATION
  Report Type: 
  Country: None (occurrence: None)
  Receive Date: 20120405
  Receipt Date: 20120330
  Transmission Date: 20120825
  Serious: Yes (Death)
  Sender: FDA-Public Use
  Company Number: US-PFIZER INC-2011036876

PATIENT
  Sex: Male

DRUGS (1)
  1. SUTENT [Suspect]
     Indication: METASTATIC RENAL CELL CARCINOMA
     Dosage: 50 MG, 1X/DAY, DAILY X 28 DAYS EVERY 42 DAYS
     Dates: start: 20110126, end: 20120320

REACTIONS (9)
  - DYSGEUSIA [None]
  - DEATH [None]
  - SKIN FISSURES [None]
  - RASH [None]
  - HAIR COLOUR CHANGES [None]
  - WEIGHT INCREASED [None]
  - DRY SKIN [None]
  - CONTUSION [None]
  - DYSPEPSIA [None]
